FAERS Safety Report 23967478 (Version 1)
Quarter: 2024Q2

REPORT INFORMATION
  Report Type: Spontaneous
  Country: US (occurrence: None)
  Receive Date: 20240611
  Receipt Date: 20240611
  Transmission Date: 20240715
  Serious: Yes (Other)
  Sender: FDA-Public Use
  Company Number: None

PATIENT
  Age: 36 Year
  Sex: Female

DRUGS (1)
  1. EPCLUSA [Suspect]
     Active Substance: SOFOSBUVIR\VELPATASVIR
     Indication: Hepatitis C
     Dosage: FREQUENCY : DAILY;?
     Route: 048

REACTIONS (6)
  - Chest discomfort [None]
  - Chest pain [None]
  - Pain [None]
  - Crying [None]
  - Erythema [None]
  - Somnolence [None]

NARRATIVE: CASE EVENT DATE: 20240425
